FAERS Safety Report 4510410-X (Version None)
Quarter: 2004Q4

REPORT INFORMATION
  Report Type: 
  Country: None (occurrence: None)
  Receive Date: 20041122
  Receipt Date: 20041109
  Transmission Date: 20050328
  Serious: Yes (Hospitalization, Other)
  Sender: FDA-Public Use
  Company Number: 195259

PATIENT
  Age: 62 Year
  Sex: Female

DRUGS (14)
  1. AVONEX [Suspect]
     Indication: MULTIPLE SCLEROSIS
     Dosage: 30 MCG QW IM
     Route: 030
     Dates: start: 20020212
  2. AVONEX [Suspect]
     Indication: MULTIPLE SCLEROSIS
     Dosage: 30 MCG QW IM
     Route: 030
  3. MACRODANTIN [Concomitant]
  4. ALTACE [Concomitant]
  5. LANOXIN [Concomitant]
  6. AMIODARONE HCL [Concomitant]
  7. MAG-OXIDE [Concomitant]
  8. ZINC [Concomitant]
  9. VITAMIN E [Concomitant]
  10. MULTI-VITAMINS [Concomitant]
  11. PRILOSEC [Concomitant]
  12. DOCUSATE SODIUM [Concomitant]
  13. NEXIUM [Concomitant]
  14. PROTONIX [Concomitant]

REACTIONS (15)
  - ASPERGILLOSIS [None]
  - BRONCHIECTASIS [None]
  - CARDIOMEGALY [None]
  - CHRONIC OBSTRUCTIVE AIRWAYS DISEASE [None]
  - DRUG INEFFECTIVE [None]
  - DYSPEPSIA [None]
  - GASTROINTESTINAL DISORDER [None]
  - HAEMOPTYSIS [None]
  - LANGERHANS' CELL GRANULOMATOSIS [None]
  - LUNG INJURY [None]
  - OESOPHAGEAL CANDIDIASIS [None]
  - PNEUMONIA [None]
  - PNEUMONIA STAPHYLOCOCCAL [None]
  - SARCOIDOSIS [None]
  - TUBERCULOSIS [None]
